FAERS Safety Report 12214255 (Version 1)
Quarter: 2016Q1

REPORT INFORMATION
  Report Type: Report from Study
  Country: BR (occurrence: BR)
  Receive Date: 20160328
  Receipt Date: 20160328
  Transmission Date: 20160526
  Serious: Yes (Other)
  Sender: FDA-Public Use
  Company Number: BR-JNJFOC-20160319513

PATIENT
  Sex: Female

DRUGS (1)
  1. SIMPONI [Suspect]
     Active Substance: GOLIMUMAB
     Indication: RHEUMATOID ARTHRITIS
     Dosage: STOPPED IN SEP OR OCT- 2015
     Route: 058
     Dates: start: 20150824, end: 2015

REACTIONS (3)
  - Hypotension [Unknown]
  - Immune system disorder [Unknown]
  - Feeling abnormal [Unknown]
